FAERS Safety Report 13477143 (Version 1)
Quarter: 2017Q2

REPORT INFORMATION
  Report Type: Spontaneous
  Country: GB (occurrence: GB)
  Receive Date: 20170425
  Receipt Date: 20170425
  Transmission Date: 20170830
  Serious: Yes (Other)
  Sender: FDA-Public Use
  Company Number: GB-TEVA-760843ACC

PATIENT
  Age: 81 Year
  Sex: Female
  Weight: 55.33 kg

DRUGS (2)
  1. PROPRANOLOL [Suspect]
     Active Substance: PROPRANOLOL HYDROCHLORIDE
     Indication: THYROID DISORDER
     Route: 048
     Dates: start: 20170308, end: 20170327
  2. VITAMIN B SUBSTANCES [Concomitant]
     Dosage: 1 DOSAGE FORMS DAILY;

REACTIONS (5)
  - Pruritus [Recovering/Resolving]
  - Oropharyngeal pain [Recovering/Resolving]
  - Abnormal dreams [Unknown]
  - Sleep disorder [Unknown]
  - Swelling face [Recovering/Resolving]

NARRATIVE: CASE EVENT DATE: 20170322
